FAERS Safety Report 17543720 (Version 1)
Quarter: 2020Q1

REPORT INFORMATION
  Report Type: Spontaneous
  Country: US (occurrence: US)
  Receive Date: 20200306
  Receipt Date: 20200306
  Transmission Date: 20200409
  Serious: Yes (Hospitalization)
  Sender: FDA-Public Use
  Company Number: None

PATIENT
  Age: 62 Year
  Sex: Male

DRUGS (1)
  1. LISINOPRIL (LISINOPRIL 20MG TAB) [Suspect]
     Active Substance: LISINOPRIL
     Indication: HYPERTENSION
     Route: 048
     Dates: start: 20190414, end: 20200205

REACTIONS (5)
  - Speech disorder [None]
  - Dysphagia [None]
  - Therapy non-responder [None]
  - Angioedema [None]
  - Swollen tongue [None]

NARRATIVE: CASE EVENT DATE: 20200206
